FAERS Safety Report 4833783-7 (Version None)
Quarter: 2005Q4

REPORT INFORMATION
  Report Type: 
  Country: None (occurrence: None)
  Receive Date: 20051118
  Receipt Date: 20051107
  Transmission Date: 20060501
  Serious: Yes (Death)
  Sender: FDA-Public Use
  Company Number: 2005-BP-19446RO

PATIENT
  Age: 18 Year
  Sex: 0

DRUGS (2)
  1. METHADONE HCL [Suspect]
  2. COCAINE (COCAINE) [Suspect]

REACTIONS (3)
  - CARDIAC ARREST [None]
  - POLYSUBSTANCE ABUSE [None]
  - RESPIRATORY ARREST [None]
